FAERS Safety Report 9388986 (Version 3)
Quarter: 2013Q4

REPORT INFORMATION
  Report Type: Report from Study
  Country: US (occurrence: US)
  Receive Date: 20130708
  Receipt Date: 20131101
  Transmission Date: 20140711
  Serious: No
  Sender: FDA-Public Use
  Company Number: PHEH2013US010126

PATIENT
  Sex: Male

DRUGS (13)
  1. TASIGNA [Suspect]
     Indication: CHRONIC MYELOID LEUKAEMIA
     Dosage: 300 MG, BID
     Route: 048
     Dates: start: 20130125
  2. CYMBALTA [Concomitant]
  3. EFFIENT [Concomitant]
  4. PRAVACHOL [Concomitant]
  5. RANEXA [Concomitant]
  6. PROTONIX [Concomitant]
  7. VOLTAREN [Concomitant]
  8. LYRICA [Concomitant]
  9. ASA [Concomitant]
     Dosage: 325 MG, UNK
  10. TOPROL XL [Concomitant]
  11. LIBRAX [Concomitant]
  12. LIDODERM [Concomitant]
  13. OXYCODONE [Concomitant]

REACTIONS (8)
  - Night sweats [Unknown]
  - Fatigue [Unknown]
  - Pain in extremity [Unknown]
  - Hyperhidrosis [Unknown]
  - Hot flush [Unknown]
  - Stomatitis [Unknown]
  - Oropharyngeal pain [Unknown]
  - Malaise [Unknown]
